FAERS Safety Report 8230305-8 (Version None)
Quarter: 2012Q1

REPORT INFORMATION
  Report Type: 
  Country: None (occurrence: None)
  Receive Date: 20120320
  Receipt Date: 20120305
  Transmission Date: 20120608
  Serious: Yes (Hospitalization)
  Sender: FDA-Public Use
  Company Number: JPI-P-020165

PATIENT
  Age: 51 Year
  Sex: Female
  Weight: 64.4108 kg

DRUGS (8)
  1. XYREM [Suspect]
     Indication: FIBROMYALGIA
     Dosage: 6 GM (3 GM, 2 IN 1 D), ORAL (TITRATING DOSE), ORAL 9 GM (4.5 GM, 2 IN 1 D), ORAL
     Route: 048
     Dates: start: 20081128
  2. DESVENLAFAXINE SUCCINATE [Concomitant]
  3. NORTRIPTYLINE HYDROCHLORIDE [Concomitant]
  4. VITAMIN [Concomitant]
  5. LISINOPRIL [Concomitant]
  6. MORPHINE [Concomitant]
  7. FENTANYL (100 MICROGRAM, POULTICE OR PATCH) [Concomitant]
  8. DILTIAZEM HYDROCHLORIDE [Concomitant]

REACTIONS (4)
  - SOMNOLENCE [None]
  - SLEEP DISORDER [None]
  - INCONTINENCE [None]
  - NERVE COMPRESSION [None]
